FAERS Safety Report 8481709-X (Version None)
Quarter: 2012Q3

REPORT INFORMATION
  Report Type: 
  Country: None (occurrence: None)
  Receive Date: 20120702
  Receipt Date: 20120627
  Transmission Date: 20120928
  Serious: Yes (Hospitalization)
  Sender: FDA-Public Use
  Company Number: US-ROCHE-1061147

PATIENT
  Sex: Female

DRUGS (3)
  1. PEGASYS [Suspect]
     Indication: HEPATITIS C
     Route: 065
     Dates: start: 20111006
  2. COPEGUS [Suspect]
     Indication: HEPATITIS C
     Route: 065
     Dates: start: 20111006
  3. TELAPREVIR [Suspect]
     Indication: HEPATITIS C

REACTIONS (9)
  - WHITE BLOOD CELL COUNT DECREASED [None]
  - ORAL PAIN [None]
  - FATIGUE [None]
  - TONGUE DISCOLOURATION [None]
  - RED BLOOD CELL COUNT DECREASED [None]
  - MELANOCYTIC NAEVUS [None]
  - DRY SKIN [None]
  - HYPONATRAEMIA [None]
  - ASTHENIA [None]
